FAERS Safety Report 25788743 (Version 3)
Quarter: 2025Q4

REPORT INFORMATION
  Report Type: Report from Study
  Country: US (occurrence: US)
  Receive Date: 20250910
  Receipt Date: 20251111
  Transmission Date: 20260117
  Serious: Yes (Hospitalization, Other)
  Sender: ACADIA PHARMACEUTICALS
  Company Number: US-ACADIA PHARMACEUTICALS INC.-ACA-2025-PIM-010048

PATIENT
  Age: 78 Year
  Sex: Female

DRUGS (9)
  1. NUPLAZID [Suspect]
     Active Substance: PIMAVANSERIN TARTRATE
     Indication: Parkinson^s disease psychosis
     Dosage: 34 MILLIGRAM, QD
     Route: 048
     Dates: start: 20240415
  2. FUROSEMIDE [Concomitant]
     Active Substance: FUROSEMIDE
  3. METFORMIN [Concomitant]
     Active Substance: METFORMIN HYDROCHLORIDE
  4. CARBIDOPA\LEVODOPA [Concomitant]
     Active Substance: CARBIDOPA\LEVODOPA
     Dosage: UNK 25/250 MG
  5. CARBIDOPA\LEVODOPA [Concomitant]
     Active Substance: CARBIDOPA\LEVODOPA
     Dosage: UNK 50/200 MG
  6. SIMVASTATIN [Concomitant]
     Active Substance: SIMVASTATIN
  7. ALENDRONATE [Concomitant]
     Active Substance: ALENDRONATE SODIUM
  8. SERTRALINE [Concomitant]
     Active Substance: SERTRALINE HYDROCHLORIDE
  9. ONDANSETRON [Concomitant]
     Active Substance: ONDANSETRON

REACTIONS (4)
  - Rib fracture [Unknown]
  - Lung perforation [Unknown]
  - Pain [Unknown]
  - Fall [Unknown]

NARRATIVE: CASE EVENT DATE: 20250812
